FAERS Safety Report 11125471 (Version 9)
Quarter: 2019Q2

REPORT INFORMATION
  Report Type: Spontaneous
  Country: US (occurrence: US)
  Receive Date: 20150520
  Receipt Date: 20190604
  Transmission Date: 20190711
  Serious: Yes (Other)
  Sender: FDA-Public Use
  Company Number: US-PFIZER INC-2015161779

PATIENT
  Age: 57 Year
  Sex: Female
  Weight: 66.21 kg

DRUGS (2)
  1. LYRICA [Suspect]
     Active Substance: PREGABALIN
     Indication: PAIN
     Dosage: 150 MG, 4X/DAY (1 QID)
     Route: 048
     Dates: start: 2014
  2. LYRICA [Suspect]
     Active Substance: PREGABALIN
     Indication: MULTIPLE SCLEROSIS

REACTIONS (19)
  - Arthralgia [Unknown]
  - Joint swelling [Unknown]
  - Muscular weakness [Unknown]
  - Myalgia [Unknown]
  - Joint stiffness [Unknown]
  - Dysuria [Unknown]
  - Cerebrovascular accident [Unknown]
  - Feeling abnormal [Recovered/Resolved]
  - Fatigue [Unknown]
  - Depression [Unknown]
  - Sleep disorder [Unknown]
  - Muscle spasms [Unknown]
  - Dizziness [Unknown]
  - Gait disturbance [Unknown]
  - Drug ineffective [Unknown]
  - Nervousness [Unknown]
  - Weight fluctuation [Unknown]
  - Back pain [Unknown]
  - Peripheral coldness [Unknown]
